FAERS Safety Report 4986225-5 (Version None)
Quarter: 2006Q2

REPORT INFORMATION
  Report Type: 
  Country: None (occurrence: None)
  Receive Date: 20060428
  Receipt Date: 20051003
  Transmission Date: 20061013
  Serious: Yes (Death)
  Sender: FDA-Public Use
  Company Number: US-MERCK-0510USA02197

PATIENT
  Age: 59 Year
  Sex: Female
  Weight: 52 kg

DRUGS (13)
  1. VIOXX [Suspect]
     Indication: ARTHRITIS
     Route: 048
     Dates: start: 19990611, end: 20011015
  2. VIOXX [Suspect]
     Route: 048
     Dates: start: 19990611, end: 20011015
  3. ZOCOR [Concomitant]
     Route: 048
  4. KLOR-CON [Concomitant]
     Route: 065
  5. TENORMIN [Concomitant]
     Route: 048
  6. DIGOXIN [Concomitant]
     Route: 048
  7. NITRO-BID [Concomitant]
     Route: 048
  8. NITROGLYCERIN [Concomitant]
     Indication: CHEST PAIN
     Route: 060
  9. CALAN [Concomitant]
     Route: 048
  10. COUMADIN [Concomitant]
     Route: 048
  11. COUMADIN [Concomitant]
     Route: 048
  12. ATIVAN [Concomitant]
     Route: 048
  13. DARVOCET [Concomitant]
     Indication: PAIN
     Route: 048

REACTIONS (22)
  - ABDOMINAL PAIN [None]
  - ACUTE ABDOMEN [None]
  - AORTIC VALVE DISEASE [None]
  - ARTERIOSCLEROSIS CORONARY ARTERY [None]
  - ASCITES [None]
  - ATRIAL FIBRILLATION [None]
  - CARDIAC FAILURE [None]
  - CARDIOMEGALY [None]
  - CEREBROVASCULAR ACCIDENT [None]
  - COLITIS [None]
  - COLITIS ISCHAEMIC [None]
  - DIAPHRAGMATIC DISORDER [None]
  - ELECTROCARDIOGRAM ST-T CHANGE [None]
  - GASTROINTESTINAL HAEMORRHAGE [None]
  - MITRAL VALVE DISEASE [None]
  - MYOCARDIAL INFARCTION [None]
  - OBSTRUCTIVE AIRWAYS DISORDER [None]
  - PLEURAL EFFUSION [None]
  - PULMONARY EMBOLISM [None]
  - SICK SINUS SYNDROME [None]
  - TRANSIENT ISCHAEMIC ATTACK [None]
  - TRICUSPID VALVE INCOMPETENCE [None]
